FAERS Safety Report 6620077-2 (Version None)
Quarter: 2010Q1

REPORT INFORMATION
  Report Type: 
  Country: None (occurrence: None)
  Receive Date: 20100309
  Receipt Date: 20100224
  Transmission Date: 20100710
  Serious: Yes (Hospitalization)
  Sender: FDA-Public Use
  Company Number: US-ROCHE-688442

PATIENT

DRUGS (9)
  1. BEVACIZUMAB [Suspect]
     Indication: BREAST CANCER
     Dosage: LAST DOSE ADMINISTERED: 4 SEPTEMBER 2009. DOSE, FORM, FREQUENCY AS PER PROTOCOL.
     Route: 042
     Dates: start: 20090904
  2. DOCETAXEL [Suspect]
     Indication: BREAST CANCER
     Dosage: LAST DOSE ADMINISTERED: 4 SEPTEMBER 2009. DOSE, FORM, FREQUENCY AS PER PROTOCOL.
     Route: 042
     Dates: start: 20090904
  3. CYCLOPHOSPHAMIDE [Suspect]
     Indication: BREAST CANCER
     Dosage: LAST DOSE ADMINISTERED: 4 SEPTEMBER 2009. DOSE, FORM, FREQUENCY AS PER PROTOCOL.
     Route: 042
     Dates: start: 20090904
  4. ZYRTEC [Concomitant]
  5. ADVIL LIQUI-GELS [Concomitant]
  6. FERROUS SULFATE TAB [Concomitant]
  7. DEXAMETASONE [Concomitant]
  8. EMEND [Concomitant]
  9. ALOXI [Concomitant]

REACTIONS (2)
  - NEUTROPHIL COUNT [None]
  - PYREXIA [None]
